FAERS Safety Report 5810654-0 (Version None)
Quarter: 2008Q3

REPORT INFORMATION
  Report Type: 
  Country: None (occurrence: None)
  Receive Date: 20080715
  Receipt Date: 20080711
  Transmission Date: 20090109
  Serious: Yes (Other)
  Sender: FDA-Public Use
  Company Number: GB-BOEHRINGER INGELHEIM GMBH, GERMANY-2008-BP-10808RO

PATIENT
  Age: 69 Year
  Sex: Female

DRUGS (3)
  1. METHOTREXATE [Suspect]
     Indication: RHEUMATOID ARTHRITIS
     Route: 048
  2. SALAZOPYRIN [Suspect]
     Indication: RHEUMATOID ARTHRITIS
  3. CRYSTACIDE [Concomitant]
     Indication: MOLLUSCUM CONTAGIOSUM
     Route: 061

REACTIONS (1)
  - MOLLUSCUM CONTAGIOSUM [None]
